FAERS Safety Report 10169042 (Version 3)
Quarter: 2014Q3

REPORT INFORMATION
  Report Type: Spontaneous
  Country: US (occurrence: None)
  Receive Date: 20140509
  Receipt Date: 20140911
  Transmission Date: 20150326
  Serious: Yes (Hospitalization)
  Sender: FDA-Public Use
  Company Number: UTC-048275

PATIENT
  Age: 36 Year
  Sex: Female

DRUGS (3)
  1. TRACLEER (BOSENTAN) UNKNOWN [Concomitant]
  2. TYVASO [Suspect]
     Active Substance: TREPROSTINIL
     Indication: COR PULMONALE CHRONIC
     Dosage: 18 TO 54 MCG, INHALATION
     Route: 055
     Dates: start: 20140402
  3. REVATIO (SILDENAFIL CITRATE) UNKNOWN [Concomitant]

REACTIONS (4)
  - Abdominal discomfort [None]
  - Gastrointestinal infection [None]
  - Therapy cessation [None]
  - Diarrhoea [None]

NARRATIVE: CASE EVENT DATE: 201404
